FAERS Safety Report 18525478 (Version 9)
Quarter: 2021Q4

REPORT INFORMATION
  Report Type: Spontaneous
  Country: GB (occurrence: GB)
  Receive Date: 20201120
  Receipt Date: 20211216
  Transmission Date: 20220303
  Serious: Yes (Hospitalization, Other)
  Sender: FDA-Public Use
  Company Number: GB-SAMSUNG BIOEPIS-SB-2020-33794

PATIENT
  Sex: Male

DRUGS (10)
  1. ADALIMUMAB [Suspect]
     Active Substance: ADALIMUMAB
     Indication: Crohn^s disease
     Dosage: 40 MILLIGRAM, Q2WK
     Route: 058
     Dates: start: 20200217
  2. ADALIMUMAB [Suspect]
     Active Substance: ADALIMUMAB
     Dosage: 40 MILLIGRAM, Q2WK
     Route: 058
  3. HUMIRA [Concomitant]
     Active Substance: ADALIMUMAB
     Indication: Product used for unknown indication
     Dosage: UNK
     Route: 065
     Dates: start: 201708
  4. LANSOPRAZOLE [Concomitant]
     Active Substance: LANSOPRAZOLE
     Indication: Product used for unknown indication
     Dosage: UNK
     Route: 065
  5. LANSOPRAZOLE [Concomitant]
     Active Substance: LANSOPRAZOLE
  6. CODEINE [Concomitant]
     Active Substance: CODEINE
     Indication: Product used for unknown indication
     Dosage: UNK
     Route: 065
  7. CODEINE [Concomitant]
     Active Substance: CODEINE
  8. ACETAMINOPHEN [Concomitant]
     Active Substance: ACETAMINOPHEN
     Indication: Product used for unknown indication
     Dosage: UNK
     Route: 065
  9. ACETAMINOPHEN [Concomitant]
     Active Substance: ACETAMINOPHEN
  10. CALCIUM CARBONATE\CHOLECALCIFEROL [Concomitant]
     Active Substance: CALCIUM CARBONATE\CHOLECALCIFEROL
     Indication: Product used for unknown indication
     Dosage: UNK
     Route: 065

REACTIONS (2)
  - Crohn^s disease [Not Recovered/Not Resolved]
  - Large intestinal obstruction [Recovered/Resolved]

NARRATIVE: CASE EVENT DATE: 20201101
